FAERS Safety Report 19034763 (Version 1)
Quarter: 2021Q1

REPORT INFORMATION
  Report Type: Spontaneous
  Country: DZ (occurrence: DZ)
  Receive Date: 20210319
  Receipt Date: 20210319
  Transmission Date: 20210420
  Serious: Yes (Other)
  Sender: FDA-Public Use
  Company Number: DZ-ROCHE-2792675

PATIENT
  Age: 62 Year
  Sex: Female

DRUGS (2)
  1. AVASTIN [Suspect]
     Active Substance: BEVACIZUMAB
     Indication: COLORECTAL CANCER METASTATIC
     Route: 042
     Dates: start: 20201004
  2. XELOX [Concomitant]
     Active Substance: CAPECITABINE\OXALIPLATIN

REACTIONS (2)
  - Proteinuria [Not Recovered/Not Resolved]
  - Haematuria [Not Recovered/Not Resolved]
